FAERS Safety Report 15537309 (Version 8)
Quarter: 2024Q1

REPORT INFORMATION
  Report Type: Spontaneous
  Country: IN (occurrence: IN)
  Receive Date: 20181022
  Receipt Date: 20240115
  Transmission Date: 20240410
  Serious: Yes (Other)
  Sender: FDA-Public Use
  Company Number: IN-PFIZER INC-2018427070

PATIENT
  Age: 79 Year
  Sex: Female

DRUGS (11)
  1. PALBOCICLIB [Suspect]
     Active Substance: PALBOCICLIB
     Indication: Breast cancer metastatic
     Dosage: 125 MG
     Route: 048
     Dates: start: 201712
  2. PALBOCICLIB [Suspect]
     Active Substance: PALBOCICLIB
     Indication: Metastases to lung
     Dosage: 125 MG, CYCLIC (ONCE DAILY, 21/28 DAYS X 3 MONTHS)
     Route: 048
     Dates: start: 20180109
  3. PALBOCICLIB [Suspect]
     Active Substance: PALBOCICLIB
     Dosage: 125 MG, CYCLIC (ONCE DAILY, 21/28 DAYS X 3 MONTHS)
     Route: 048
     Dates: start: 20210610
  4. PALBOCICLIB [Suspect]
     Active Substance: PALBOCICLIB
     Dosage: 125 MG
     Dates: end: 202211
  5. PALBOCICLIB [Suspect]
     Active Substance: PALBOCICLIB
     Dosage: UNK
     Dates: start: 202108
  6. PALBOCICLIB [Suspect]
     Active Substance: PALBOCICLIB
     Dosage: 100 MG, CYCLIC (OD X 21/28DAYS)
     Dates: start: 20230825
  7. LETROZOLE [Concomitant]
     Active Substance: LETROZOLE
     Indication: Breast cancer metastatic
     Dosage: 2.5 MG, 1X/DAY
     Dates: start: 201712
  8. LETROZOLE [Concomitant]
     Active Substance: LETROZOLE
     Indication: Metastases to lung
  9. CALCIUM CARBONATE\CHOLECALCIFEROL [Concomitant]
     Active Substance: CALCIUM CARBONATE\CHOLECALCIFEROL
     Dosage: 520 MG, 1X/DAY
  10. CALCIUM CARBONATE\CHOLECALCIFEROL [Concomitant]
     Active Substance: CALCIUM CARBONATE\CHOLECALCIFEROL
     Dosage: 500 MG
  11. FERRIC CARBOXYMALTOSE [Concomitant]
     Active Substance: FERRIC CARBOXYMALTOSE
     Dosage: 2.5 MG, 1X/DAY

REACTIONS (10)
  - Autoimmune thyroiditis [Unknown]
  - Hepatomegaly [Unknown]
  - Accessory spleen [Unknown]
  - Renal cyst [Unknown]
  - Bone hypertrophy [Unknown]
  - Osteoarthritis [Unknown]
  - Bone disorder [Unknown]
  - Pyrexia [Unknown]
  - Neoplasm progression [Unknown]
  - Neoplasm recurrence [Unknown]

NARRATIVE: CASE EVENT DATE: 20230801
